FAERS Safety Report 24633426 (Version 1)
Quarter: 2024Q4

REPORT INFORMATION
  Report Type: Spontaneous
  Country: US (occurrence: US)
  Receive Date: 20241118
  Receipt Date: 20241118
  Transmission Date: 20250115
  Serious: No
  Sender: SANOFI AVENTIS
  Company Number: US-SA-2024SA331256

PATIENT
  Age: 12 Year
  Sex: Male

DRUGS (1)
  1. DUPILUMAB [Suspect]
     Active Substance: DUPILUMAB
     Indication: Dermatitis allergic
     Dosage: 200MG, QOW
     Route: 058

REACTIONS (2)
  - Dermatitis allergic [Recovered/Resolved]
  - Condition aggravated [Recovered/Resolved]
